FAERS Safety Report 6602831-6 (Version None)
Quarter: 2010Q1

REPORT INFORMATION
  Report Type: 
  Country: None (occurrence: None)
  Receive Date: 20100226
  Receipt Date: 20100218
  Transmission Date: 20100710
  Serious: Yes (Hospitalization, Other)
  Sender: FDA-Public Use
  Company Number: US-BIOGENIDEC-2008BI035148

PATIENT
  Sex: Male
  Weight: 170 kg

DRUGS (2)
  1. AVONEX [Suspect]
     Indication: MULTIPLE SCLEROSIS
     Route: 030
     Dates: start: 20080301, end: 20080912
  2. COUMADIN [Concomitant]
     Indication: ARRHYTHMIA
     Dates: start: 20081201

REACTIONS (4)
  - ARRHYTHMIA [None]
  - BLOOD COUNT ABNORMAL [None]
  - DIZZINESS [None]
  - WEIGHT INCREASED [None]
